FAERS Safety Report 23508319 (Version 1)
Quarter: 2024Q1

REPORT INFORMATION
  Report Type: Spontaneous
  Country: US (occurrence: US)
  Receive Date: 20240209
  Receipt Date: 20240209
  Transmission Date: 20240409
  Serious: No
  Sender: FDA-Public Use
  Company Number: US-IBSA PHARMA INC.-2023IBS000802

PATIENT

DRUGS (1)
  1. TIROSINT-SOL [Suspect]
     Active Substance: LEVOTHYROXINE SODIUM
     Indication: Product used for unknown indication
     Dosage: 88 MICROGRAM, QD
     Route: 048
     Dates: start: 2023

REACTIONS (4)
  - Dizziness postural [Unknown]
  - Vision blurred [Unknown]
  - Gait disturbance [Unknown]
  - Headache [Unknown]

NARRATIVE: CASE EVENT DATE: 20230101
